FAERS Safety Report 4772333-0 (Version None)
Quarter: 2005Q3

REPORT INFORMATION
  Report Type: 
  Country: None (occurrence: None)
  Receive Date: 20050919
  Receipt Date: 20050415
  Transmission Date: 20060218
  Serious: No
  Sender: FDA-Public Use
  Company Number: US-BRISTOL-MYERS SQUIBB COMPANY-12935433

PATIENT
  Age: 17 Year
  Sex: Female

DRUGS (1)
  1. TRIMOX [Suspect]
     Dates: start: 20040528, end: 20040603

REACTIONS (1)
  - HYPERSENSITIVITY [None]
